FAERS Safety Report 10224871 (Version 1)
Quarter: 2014Q2

REPORT INFORMATION
  Report Type: Spontaneous
  Country: GB (occurrence: GB)
  Receive Date: 20140609
  Receipt Date: 20140609
  Transmission Date: 20141212
  Serious: Yes (Other)
  Sender: FDA-Public Use
  Company Number: GB-GLAXOSMITHKLINE-B0999085A

PATIENT
  Sex: Male

DRUGS (3)
  1. REQUIP XL [Suspect]
     Indication: PARKINSON^S DISEASE
     Dosage: 12MG PER DAY
     Route: 065
  2. APOMORPHINE [Suspect]
     Indication: PARKINSON^S DISEASE
  3. STALEVO [Suspect]
     Indication: PARKINSON^S DISEASE
     Dosage: 200MG SIX TIMES PER DAY

REACTIONS (5)
  - Dementia [Not Recovered/Not Resolved]
  - Amnesia [Unknown]
  - Cognitive disorder [Unknown]
  - Poor quality sleep [Unknown]
  - Somnolence [Unknown]
